FAERS Safety Report 12425878 (Version 2)
Quarter: 2016Q3

REPORT INFORMATION
  Report Type: Spontaneous
  Country: FR (occurrence: FR)
  Receive Date: 20160601
  Receipt Date: 20160726
  Transmission Date: 20161109
  Serious: Yes (Hospitalization)
  Sender: FDA-Public Use
  Company Number: FR-OTSUKA-2016_011812

PATIENT
  Age: 58 Year
  Sex: Male

DRUGS (1)
  1. ABILIFY MAINTENA [Suspect]
     Active Substance: ARIPIPRAZOLE
     Indication: SCHIZOAFFECTIVE DISORDER
     Dosage: UNK, ONCE A MONTH
     Route: 030
     Dates: start: 20150706, end: 20151001

REACTIONS (5)
  - Logorrhoea [Recovered/Resolved]
  - Delusional disorder, unspecified type [Recovered/Resolved]
  - Anxiety disorder [Recovered/Resolved]
  - Tachyphrenia [Recovered/Resolved]
  - Off label use [Recovered/Resolved]

NARRATIVE: CASE EVENT DATE: 20150706
